FAERS Safety Report 13332745 (Version 1)
Quarter: 2017Q1

REPORT INFORMATION
  Report Type: Spontaneous
  Country: US (occurrence: US)
  Receive Date: 20170314
  Receipt Date: 20170314
  Transmission Date: 20170428
  Serious: Yes (Hospitalization)
  Sender: FDA-Public Use
  Company Number: None

PATIENT
  Age: 51 Year
  Sex: Male

DRUGS (11)
  1. AMLODIPINE [Concomitant]
     Active Substance: AMLODIPINE BESYLATE
  2. NORVASC [Concomitant]
     Active Substance: AMLODIPINE BESYLATE
  3. OXYCODONE [Concomitant]
     Active Substance: OXYCODONE
  4. VOTRIENT [Suspect]
     Active Substance: PAZOPANIB HYDROCHLORIDE
     Indication: NEOPLASM MALIGNANT
     Dosage: DOSE AMOUNT - FOUR 200MG TABLETS
     Route: 048
     Dates: start: 20141017
  5. COZAAR [Concomitant]
     Active Substance: LOSARTAN POTASSIUM
  6. EFFEXOR [Concomitant]
     Active Substance: VENLAFAXINE HYDROCHLORIDE
  7. SIMVASTATIN. [Concomitant]
     Active Substance: SIMVASTATIN
  8. ZOCOR [Concomitant]
     Active Substance: SIMVASTATIN
  9. ALBUTEROL. [Concomitant]
     Active Substance: ALBUTEROL
  10. BUPROPION. [Concomitant]
     Active Substance: BUPROPION
  11. FENTANYL. [Concomitant]
     Active Substance: FENTANYL

REACTIONS (1)
  - Hospitalisation [None]
